FAERS Safety Report 16883292 (Version 2)
Quarter: 2019Q4

REPORT INFORMATION
  Report Type: Spontaneous
  Country: US (occurrence: US)
  Receive Date: 20191004
  Receipt Date: 20191230
  Transmission Date: 20200122
  Serious: Yes (Hospitalization)
  Sender: FDA-Public Use
  Company Number: US-AUROBINDO-AUR-APL-2019-063049

PATIENT
  Age: 74 Year
  Sex: Male
  Weight: 79 kg

DRUGS (4)
  1. LORAZEPAM TABLETS USP 1 MG [Suspect]
     Active Substance: LORAZEPAM
     Indication: ANXIETY
     Dosage: 4 DOSAGE FORM, DAILY
     Route: 065
     Dates: start: 20190801, end: 20190917
  2. ALBUTEROL. [Concomitant]
     Active Substance: ALBUTEROL
     Indication: PRODUCT USED FOR UNKNOWN INDICATION
     Dosage: UNK
     Route: 065
  3. HYDROCODONE [Concomitant]
     Active Substance: HYDROCODONE
     Indication: PRODUCT USED FOR UNKNOWN INDICATION
     Dosage: UNK
     Route: 065
  4. PRONASE [Concomitant]
     Active Substance: PROTEASE
     Indication: PRODUCT USED FOR UNKNOWN INDICATION
     Dosage: UNK
     Route: 065

REACTIONS (5)
  - Abdominal discomfort [Unknown]
  - Adverse reaction [Unknown]
  - Drug ineffective [Unknown]
  - Pyrexia [Unknown]
  - Hypertension [Unknown]
